FAERS Safety Report 19753155 (Version 7)
Quarter: 2022Q2

REPORT INFORMATION
  Report Type: Report from Study
  Country: US (occurrence: US)
  Receive Date: 20210826
  Receipt Date: 20220620
  Transmission Date: 20220720
  Serious: Yes (Other)
  Sender: FDA-Public Use
  Company Number: NVSC2021US193023

PATIENT
  Sex: Female

DRUGS (4)
  1. ENTRESTO [Suspect]
     Active Substance: SACUBITRIL\VALSARTAN
     Indication: Product used for unknown indication
     Dosage: 1 DF, BID (49/51 MG)
     Route: 048
     Dates: start: 20210708
  2. ENTRESTO [Suspect]
     Active Substance: SACUBITRIL\VALSARTAN
     Dosage: 1 DF, BID (49/51 MG)
     Route: 048
  3. ENTRESTO [Suspect]
     Active Substance: SACUBITRIL\VALSARTAN
     Dosage: UNK, BID
     Route: 048
     Dates: start: 20210708
  4. ENTRESTO [Suspect]
     Active Substance: SACUBITRIL\VALSARTAN
     Dosage: UNK, BID, 97/103 MG
     Route: 048
     Dates: start: 20210708

REACTIONS (13)
  - Nephrolithiasis [Unknown]
  - Pain [Unknown]
  - Pain in extremity [Unknown]
  - Burning sensation [Unknown]
  - Muscle twitching [Unknown]
  - Cystitis [Unknown]
  - Vomiting [Unknown]
  - Back pain [Unknown]
  - Palpitations [Unknown]
  - Cough [Unknown]
  - Fatigue [Unknown]
  - Hypotension [Unknown]
  - Blood urine present [Unknown]
